FAERS Safety Report 7399679-4 (Version None)
Quarter: 2011Q2

REPORT INFORMATION
  Report Type: 
  Country: None (occurrence: None)
  Receive Date: 20110407
  Receipt Date: 20110406
  Transmission Date: 20111010
  Serious: No
  Sender: FDA-Public Use
  Company Number: US-PFIZER INC-2011076070

PATIENT
  Sex: Female

DRUGS (2)
  1. CHANTIX [Suspect]
     Dosage: 1 MG, 1X/DAY (IN THE MORNING)
  2. CHANTIX [Suspect]
     Dosage: 0.5 MG, UNK

REACTIONS (1)
  - NIGHTMARE [None]
